FAERS Safety Report 16361850 (Version 1)
Quarter: 2019Q2

REPORT INFORMATION
  Report Type: Spontaneous
  Country: US (occurrence: US)
  Receive Date: 20190528
  Receipt Date: 20190528
  Transmission Date: 20190711
  Serious: No
  Sender: FDA-Public Use
  Company Number: US-PFIZER INC-2019222728

PATIENT
  Age: 33 Year
  Sex: Female
  Weight: 68.4 kg

DRUGS (1)
  1. GABAPENTIN. [Suspect]
     Active Substance: GABAPENTIN
     Dosage: 300 MG, 1X/DAY (AT NIGHT)
     Route: 048

REACTIONS (6)
  - Blood thyroid stimulating hormone decreased [Unknown]
  - Hypoaesthesia [Unknown]
  - Back pain [Unknown]
  - Somnolence [Not Recovered/Not Resolved]
  - Paraesthesia [Unknown]
  - Musculoskeletal pain [Not Recovered/Not Resolved]

NARRATIVE: CASE EVENT DATE: 20190517
